FAERS Safety Report 19408933 (Version 2)
Quarter: 2021Q4

REPORT INFORMATION
  Report Type: Spontaneous
  Country: DE (occurrence: DE)
  Receive Date: 20210613
  Receipt Date: 20211102
  Transmission Date: 20220304
  Serious: Yes (Hospitalization)
  Sender: FDA-Public Use
  Company Number: DE-KRKA-DE2021K07393SPO

PATIENT
  Age: 20 Year
  Sex: Male

DRUGS (8)
  1. CLONAZEPAM [Suspect]
     Active Substance: CLONAZEPAM
     Indication: Drug abuse
     Dosage: 21 MG, PER DAY
     Route: 048
     Dates: start: 20210525, end: 20210525
  2. BROMAZEPAM [Suspect]
     Active Substance: BROMAZEPAM
     Indication: Drug abuse
     Dosage: 24 MG, PER DAY
     Route: 048
     Dates: start: 20210525, end: 20210525
  3. CARVEDILOL [Suspect]
     Active Substance: CARVEDILOL
     Indication: Drug abuse
     Dosage: 12.5 MG, PER DAY
     Route: 048
     Dates: start: 20210525, end: 20210525
  4. BISOPROLOL FUMARATE [Suspect]
     Active Substance: BISOPROLOL FUMARATE
     Indication: Drug abuse
     Dosage: 4 X 3.75 MG, PER DAY
     Route: 048
     Dates: start: 20210525, end: 20210525
  5. TILIDINE [Suspect]
     Active Substance: TILIDINE
     Indication: Drug abuse
     Dosage: 200 MG + 400 MG, PER DAY
     Route: 048
     Dates: start: 20210525, end: 20210525
  6. CANDESARTAN [Suspect]
     Active Substance: CANDESARTAN
     Indication: Product used for unknown indication
     Dosage: 48 MG, PER DAY
     Route: 048
     Dates: start: 20210525, end: 20210525
  7. CODEINE [Suspect]
     Active Substance: CODEINE
     Indication: Drug abuse
     Dosage: 120 MG, PER DAY
     Route: 048
     Dates: start: 20210525, end: 20210525
  8. ALPRAZOLAM [Suspect]
     Active Substance: ALPRAZOLAM
     Indication: Drug abuse
     Dosage: 17 MG, PER DAY
     Route: 048
     Dates: start: 20210525, end: 20210525

REACTIONS (3)
  - Acute kidney injury [Recovered/Resolved]
  - Drug abuse [Unknown]
  - Sinus bradycardia [Recovered/Resolved]

NARRATIVE: CASE EVENT DATE: 20210525
